APPROVED DRUG PRODUCT: ZERBAXA
Active Ingredient: CEFTOLOZANE SULFATE; TAZOBACTAM SODIUM
Strength: EQ 1GM BASE/VIAL;EQ 0.5GM BASE/VIAL
Dosage Form/Route: POWDER;INTRAVENOUS
Application: N206829 | Product #001
Applicant: CUBIST PHARMACEUTICALS LLC
Approved: Dec 19, 2014 | RLD: Yes | RS: Yes | Type: RX

PATENTS:
Patent 7129232 | Expires: May 15, 2028
Patent 8968753 | Expires: Mar 14, 2034
Patent 8968753 | Expires: Mar 14, 2034
Patent 9724353 | Expires: Sep 7, 2032
Patent 10028963 | Expires: Sep 7, 2032
Patent 7129232 | Expires: May 15, 2028
Patent 10376496 | Expires: Sep 9, 2034
Patent 10376496 | Expires: Sep 9, 2034
Patent 10420841 | Expires: Mar 14, 2034
Patent 10420841 | Expires: Mar 14, 2034
Patent 10933053 | Expires: Sep 9, 2034
Patent 10933053 | Expires: Sep 9, 2034
Patent 11278622 | Expires: Mar 14, 2034
Patent 11278622 | Expires: Mar 14, 2034
Patent 10028963 | Expires: Sep 7, 2032
Patent 10420841 | Expires: Mar 14, 2034
Patent 10420841 | Expires: Mar 14, 2034
Patent 7129232 | Expires: May 15, 2028
Patent 7129232 | Expires: May 15, 2028
Patent 8968753 | Expires: Mar 14, 2034
Patent 8968753 | Expires: Mar 14, 2034
Patent 9724353 | Expires: Sep 7, 2032
Patent 10125149 | Expires: Aug 14, 2035
Patent 8906898 | Expires: May 28, 2034
Patent 9872906 | Expires: Mar 14, 2034
Patent 9320740 | Expires: Mar 14, 2034